FAERS Safety Report 5950899-2 (Version None)
Quarter: 2008Q4

REPORT INFORMATION
  Report Type: 
  Country: None (occurrence: None)
  Receive Date: 20081110
  Receipt Date: 20081027
  Transmission Date: 20090506
  Serious: Yes (Hospitalization, Other)
  Sender: FDA-Public Use
  Company Number: 1000001585

PATIENT
  Sex: Female

DRUGS (4)
  1. ESCITALOPRAM [Suspect]
     Indication: DEPRESSION
  2. CHAMPIX [Suspect]
     Indication: SMOKING CESSATION THERAPY
     Dosage: ORAL
     Route: 048
  3. TRITICUM [Suspect]
     Indication: DEPRESSION
  4. ANXIOLYTICS [Concomitant]

REACTIONS (3)
  - ACUTE PSYCHOSIS [None]
  - DRUG INTERACTION [None]
  - HALLUCINATION, VISUAL [None]
